FAERS Safety Report 7772436-2 (Version None)
Quarter: 2011Q3

REPORT INFORMATION
  Report Type: 
  Country: None (occurrence: None)
  Receive Date: 20110922
  Receipt Date: 20110919
  Transmission Date: 20111222
  Serious: Yes (Hospitalization)
  Sender: FDA-Public Use
  Company Number: US-B.I. PHARMACEUTICALS,INC./RIDGEFIELD-2011-BP-18400BP

PATIENT
  Sex: Female

DRUGS (5)
  1. BLOOD PRESSURE PILLS [Concomitant]
     Indication: HYPERTENSION
  2. SPIRIVA [Suspect]
     Indication: CHRONIC OBSTRUCTIVE PULMONARY DISEASE
     Dosage: 18 MCG
     Route: 055
     Dates: start: 20060101
  3. EYE DROPS [Concomitant]
     Indication: GLAUCOMA
  4. THYROID PILL [Concomitant]
     Indication: HYPOTHYROIDISM
  5. DIGOXIN [Concomitant]
     Indication: CARDIAC ASSISTANCE DEVICE USER

REACTIONS (2)
  - HEART RATE DECREASED [None]
  - DYSPNOEA [None]
